FAERS Safety Report 6362108-3 (Version None)
Quarter: 2009Q3

REPORT INFORMATION
  Report Type: 
  Country: None (occurrence: None)
  Receive Date: 20090918
  Receipt Date: 20090914
  Transmission Date: 20100115
  Serious: Yes (Hospitalization)
  Sender: FDA-Public Use
  Company Number: US-ELI_LILLY_AND_COMPANY-US200909003038

PATIENT
  Sex: Male

DRUGS (2)
  1. BYETTA [Suspect]
     Route: 058
  2. ASPIRIN [Concomitant]

REACTIONS (2)
  - HOSPITALISATION [None]
  - INJECTION SITE HAEMATOMA [None]
